APPROVED DRUG PRODUCT: PREGABALIN
Active Ingredient: PREGABALIN
Strength: 75MG
Dosage Form/Route: CAPSULE;ORAL
Application: A209743 | Product #003 | TE Code: AB
Applicant: AMNEAL PHARMACEUTICALS CO GMBH
Approved: Jul 19, 2019 | RLD: No | RS: No | Type: RX